FAERS Safety Report 11461927 (Version 1)
Quarter: 2015Q3

REPORT INFORMATION
  Report Type: Spontaneous
  Country: US (occurrence: US)
  Receive Date: 20150831
  Receipt Date: 20150831
  Transmission Date: 20151125
  Serious: No
  Sender: FDA-Public Use
  Company Number: US-ELI_LILLY_AND_COMPANY-US201009004621

PATIENT
  Sex: Female

DRUGS (3)
  1. CYMBALTA [Suspect]
     Active Substance: DULOXETINE HYDROCHLORIDE
     Dosage: 60 MG, UNK
  2. PAROXETINE [Concomitant]
     Active Substance: PAROXETINE\PAROXETINE HYDROCHLORIDE
  3. CYMBALTA [Suspect]
     Active Substance: DULOXETINE HYDROCHLORIDE
     Indication: ANXIETY
     Dosage: 30 MG, DAILY (1/D)
     Dates: start: 20100905

REACTIONS (14)
  - Yawning [Unknown]
  - Depressed level of consciousness [Unknown]
  - Somnolence [Unknown]
  - Drug ineffective [Unknown]
  - Hypervigilance [Unknown]
  - Mood swings [Unknown]
  - Confusional state [Unknown]
  - Hyperhidrosis [Unknown]
  - Feeling of relaxation [Unknown]
  - Feeling abnormal [Unknown]
  - Agitation [Unknown]
  - Dizziness [Unknown]
  - Tremor [Unknown]
  - Insomnia [Unknown]
